FAERS Safety Report 20166650 (Version 4)
Quarter: 2022Q1

REPORT INFORMATION
  Report Type: Spontaneous
  Country: IT (occurrence: IT)
  Receive Date: 20211209
  Receipt Date: 20220105
  Transmission Date: 20220423
  Serious: Yes (Other)
  Sender: FDA-Public Use
  Company Number: IT-NOVARTISPH-NVSC2021IT281153

PATIENT
  Age: 72 Year
  Sex: Female

DRUGS (8)
  1. AZITHROMYCIN DIHYDRATE [Interacting]
     Active Substance: AZITHROMYCIN DIHYDRATE
     Indication: COVID-19
     Dosage: 500 MG, QD
     Route: 065
     Dates: start: 20200406, end: 20200408
  2. HYDROXYCHLOROQUINE SULFATE [Interacting]
     Active Substance: HYDROXYCHLOROQUINE SULFATE
     Indication: COVID-19
     Dosage: 400 MG, BID (2/DAY) FOR 24 H
     Route: 065
     Dates: start: 20200406, end: 20200406
  3. HYDROXYCHLOROQUINE SULFATE [Interacting]
     Active Substance: HYDROXYCHLOROQUINE SULFATE
     Dosage: 200 MG, BID (2/DAY)
     Route: 065
     Dates: start: 20200407, end: 20200408
  4. OSIMERTINIB [Concomitant]
     Active Substance: OSIMERTINIB
     Indication: Disease progression
     Dosage: UNK
     Route: 065
     Dates: start: 2018
  5. ENOXAPARIN [Concomitant]
     Active Substance: ENOXAPARIN
     Indication: COVID-19
     Dosage: UNK
     Route: 058
     Dates: start: 2020
  6. METHYLPREDNISOLONE [Concomitant]
     Active Substance: METHYLPREDNISOLONE
     Indication: Disease progression
     Dosage: 40 MG, BID (2/DAY)
     Route: 065
     Dates: start: 20200401
  7. METHYLPREDNISOLONE [Concomitant]
     Active Substance: METHYLPREDNISOLONE
     Indication: Dyspnoea
  8. OXYGEN [Concomitant]
     Active Substance: OXYGEN
     Indication: Oxygen therapy
     Dosage: 3 L  PER MINUTE
     Route: 065
     Dates: start: 20200401

REACTIONS (3)
  - Electrocardiogram QT prolonged [Unknown]
  - Drug interaction [Unknown]
  - Off label use [Unknown]

NARRATIVE: CASE EVENT DATE: 20200408
